FAERS Safety Report 24651315 (Version 1)
Quarter: 2024Q4

REPORT INFORMATION
  Report Type: Spontaneous
  Country: CA (occurrence: CA)
  Receive Date: 20241122
  Receipt Date: 20241122
  Transmission Date: 20250114
  Serious: Yes (Life-Threatening, Hospitalization)
  Sender: ACCORD
  Company Number: None

PATIENT
  Age: 4 Year
  Sex: Female
  Weight: 13 kg

DRUGS (5)
  1. METHOTREXATE [Suspect]
     Active Substance: METHOTREXATE
     Indication: Product used for unknown indication
  2. DOXORUBICIN [Suspect]
     Active Substance: DOXORUBICIN
     Indication: Product used for unknown indication
  3. DEXAMETHASONE [Suspect]
     Active Substance: DEXAMETHASONE
     Indication: Product used for unknown indication
     Route: 065
  4. PEGASPARGASE [Suspect]
     Active Substance: PEGASPARGASE
     Indication: Product used for unknown indication
     Route: 065
  5. VINCRISTINE SULFATE [Suspect]
     Active Substance: VINCRISTINE SULFATE
     Indication: Product used for unknown indication

REACTIONS (1)
  - Febrile neutropenia [Recovered/Resolved]
